FAERS Safety Report 5376909-1 (Version None)
Quarter: 2007Q2

REPORT INFORMATION
  Report Type: 
  Country: None (occurrence: None)
  Receive Date: 20070628
  Receipt Date: 20070628
  Transmission Date: 20071010
  Serious: Yes (Other)
  Sender: FDA-Public Use
  Company Number: None

PATIENT
  Sex: Female
  Weight: 63.5036 kg

DRUGS (2)
  1. CIPROFLOXACIN [Suspect]
     Indication: DIARRHOEA INFECTIOUS
     Dosage: 1 TABLET 2 TIMES/DAY
     Dates: start: 20070410, end: 20070412
  2. CIPROFLOXACIN [Suspect]
     Indication: URINARY TRACT INFECTION
     Dosage: 1 TABLET 2 TIMES/DAY
     Dates: start: 20070507, end: 20070508

REACTIONS (10)
  - ANOREXIA [None]
  - ARTHRALGIA [None]
  - FATIGUE [None]
  - INSOMNIA [None]
  - MUSCULOSKELETAL PAIN [None]
  - MYALGIA [None]
  - PAIN IN EXTREMITY [None]
  - STOMACH DISCOMFORT [None]
  - TENDON RUPTURE [None]
  - URINARY TRACT INFECTION [None]
